FAERS Safety Report 22748892 (Version 3)
Quarter: 2024Q1

REPORT INFORMATION
  Report Type: Spontaneous
  Country: US (occurrence: US)
  Receive Date: 20230725
  Receipt Date: 20240313
  Transmission Date: 20240410
  Serious: No
  Sender: FDA-Public Use
  Company Number: US-PFIZER INC-PV202300124806

PATIENT
  Age: 63 Year
  Sex: Female

DRUGS (1)
  1. XELJANZ XR [Suspect]
     Active Substance: TOFACITINIB CITRATE
     Dosage: UNK

REACTIONS (7)
  - Drug ineffective [Unknown]
  - Diarrhoea [Recovering/Resolving]
  - Migraine [Unknown]
  - Disease recurrence [Unknown]
  - Bronchitis [Unknown]
  - Streptococcal infection [Unknown]
  - Illness [Unknown]
